FAERS Safety Report 7301741-9 (Version None)
Quarter: 2011Q1

REPORT INFORMATION
  Report Type: 
  Country: None (occurrence: None)
  Receive Date: 20110218
  Receipt Date: 20110214
  Transmission Date: 20110831
  Serious: Yes (Hospitalization, Congenital Anomaly)
  Sender: FDA-Public Use
  Company Number: A0871457A

PATIENT
  Sex: Male

DRUGS (1)
  1. PAXIL [Suspect]
     Route: 064

REACTIONS (7)
  - ATRIAL SEPTAL DEFECT [None]
  - ATRIAL TACHYCARDIA [None]
  - ATRIAL FLUTTER [None]
  - DRUG EXPOSURE DURING PREGNANCY [None]
  - PATENT DUCTUS ARTERIOSUS [None]
  - HYPOPLASTIC LEFT HEART SYNDROME [None]
  - ATRIAL FIBRILLATION [None]
